FAERS Safety Report 5599562-0 (Version None)
Quarter: 2008Q1

REPORT INFORMATION
  Report Type: 
  Country: None (occurrence: None)
  Receive Date: 20080123
  Receipt Date: 20080111
  Transmission Date: 20080703
  Serious: Yes (Hospitalization)
  Sender: FDA-Public Use
  Company Number: PHBS2007KR21386

PATIENT
  Age: 35 Year
  Sex: Male
  Weight: 86 kg

DRUGS (4)
  1. CLOZAPINE [Suspect]
     Indication: SCHIZOPHRENIA
     Route: 065
  2. AMISULPRIDE [Concomitant]
     Dosage: 400 MG, UNK
  3. PROCYCLIDINE HYDROCHLORIDE 2MG TAB [Concomitant]
     Dosage: 5 MG, UNK
  4. ESCITALOPRAM OXALATE [Concomitant]
     Dosage: 10 MG, UNK

REACTIONS (32)
  - ABDOMINAL PAIN [None]
  - ASPARTATE AMINOTRANSFERASE INCREASED [None]
  - BLOOD ALKALINE PHOSPHATASE INCREASED [None]
  - BLOOD AMYLASE INCREASED [None]
  - BLOOD CREATINE PHOSPHOKINASE INCREASED [None]
  - BLOOD CREATININE INCREASED [None]
  - BLOOD GLUCOSE ABNORMAL [None]
  - BLOOD LACTATE DEHYDROGENASE INCREASED [None]
  - BLOOD PH DECREASED [None]
  - BLOOD POTASSIUM INCREASED [None]
  - BLOOD PRESSURE DECREASED [None]
  - BLOOD SODIUM DECREASED [None]
  - BLOOD UREA INCREASED [None]
  - COMA [None]
  - DIABETIC KETOACIDOSIS [None]
  - DRY MOUTH [None]
  - HEART RATE INCREASED [None]
  - ILEUS PARALYTIC [None]
  - LIPASE INCREASED [None]
  - LOSS OF CONSCIOUSNESS [None]
  - MALAISE [None]
  - METABOLIC ACIDOSIS [None]
  - NAUSEA [None]
  - PANCREATIC DISORDER [None]
  - PANCREATITIS ACUTE [None]
  - PCO2 DECREASED [None]
  - PO2 INCREASED [None]
  - POLYURIA [None]
  - PUPILLARY LIGHT REFLEX TESTS ABNORMAL [None]
  - RENAL FAILURE ACUTE [None]
  - SHOCK [None]
  - TONGUE DRY [None]
